FAERS Safety Report 4854664-9 (Version None)
Quarter: 2005Q4

REPORT INFORMATION
  Report Type: 
  Country: None (occurrence: None)
  Receive Date: 20051215
  Receipt Date: 20050218
  Transmission Date: 20060501
  Serious: Yes (Hospitalization)
  Sender: FDA-Public Use
  Company Number: US-MERCK-0502USA02819

PATIENT
  Age: 76 Year
  Sex: Female
  Weight: 91 kg

DRUGS (4)
  1. VIOXX [Suspect]
     Indication: ARTHRITIS
     Route: 048
     Dates: start: 20000101, end: 20040101
  2. TYLENOL [Concomitant]
     Route: 065
  3. CODEINE [Concomitant]
     Route: 065
  4. SOMA [Concomitant]
     Route: 065

REACTIONS (6)
  - BACK PAIN [None]
  - CEREBROVASCULAR ACCIDENT [None]
  - FACIAL BONES FRACTURE [None]
  - FOOD POISONING [None]
  - HYPERTENSION [None]
  - SURGERY [None]
